FAERS Safety Report 23289651 (Version 1)
Quarter: 2023Q4

REPORT INFORMATION
  Report Type: Spontaneous
  Country: US (occurrence: US)
  Receive Date: 20231212
  Receipt Date: 20231212
  Transmission Date: 20240110
  Serious: No
  Sender: FDA-Public Use
  Company Number: US-VIIV HEALTHCARE LIMITED-US2023171706

PATIENT

DRUGS (3)
  1. RILPIVIRINE [Interacting]
     Active Substance: RILPIVIRINE
     Indication: Product used for unknown indication
     Dosage: UNK
     Route: 065
  2. CABOTEGRAVIR [Interacting]
     Active Substance: CABOTEGRAVIR
     Indication: Product used for unknown indication
     Dosage: UNK
     Route: 065
  3. RIFAMPIN [Interacting]
     Active Substance: RIFAMPIN
     Indication: Product used for unknown indication
     Dosage: UNK

REACTIONS (2)
  - Drug interaction [Unknown]
  - Contraindicated product prescribed [Unknown]
